FAERS Safety Report 8593632-0 (Version None)
Quarter: 2012Q3

REPORT INFORMATION
  Report Type: 
  Country: None (occurrence: None)
  Receive Date: 20120814
  Receipt Date: 20120811
  Transmission Date: 20120928
  Serious: Yes (Other)
  Sender: FDA-Public Use
  Company Number: SE-PFIZER INC-2012196964

PATIENT
  Age: 59 Year
  Sex: Female

DRUGS (2)
  1. VARENICLINE [Suspect]
     Dosage: 1 MG, UNK
  2. VARENICLINE [Suspect]
     Dosage: 0.5 MG, UNK
     Dates: start: 20110101

REACTIONS (8)
  - SOCIAL AVOIDANT BEHAVIOUR [None]
  - BLOOD IRON DECREASED [None]
  - HYPOACUSIS [None]
  - ABDOMINAL PAIN UPPER [None]
  - MOOD ALTERED [None]
  - PERSONALITY DISORDER [None]
  - DEPRESSED MOOD [None]
  - TINNITUS [None]
